FAERS Safety Report 21384979 (Version 2)
Quarter: 2022Q3

REPORT INFORMATION
  Report Type: Report from Study
  Country: MX (occurrence: MX)
  Receive Date: 20220928
  Receipt Date: 20220930
  Transmission Date: 20221026
  Serious: Yes (Other)
  Sender: FDA-Public Use
  Company Number: MX-NOVARTISPH-NVSC2022MX218748

PATIENT
  Sex: Male
  Weight: 92 kg

DRUGS (2)
  1. EXELON [Suspect]
     Active Substance: RIVASTIGMINE TARTRATE
     Indication: Posterior cortical atrophy
     Dosage: 1 DOSAGE FORM, (9 MG) QD (PATCH 5 (CM2) OR CONTAINS BASE LOADED WITH 9 MG RIVASTIGMINE/DAILY (DELIVE
     Route: 062
     Dates: start: 2013
  2. EXELON [Suspect]
     Active Substance: RIVASTIGMINE TARTRATE
     Dosage: 1 DOSAGE FORM, (27 MG) QD STARTED 4 YEARS AGO (PATCH 15 (CM2) OR CONTAINS BASE LOADED WITH 27 MG RIV
     Route: 062
     Dates: start: 2018, end: 202201

REACTIONS (3)
  - Seizure [Recovered/Resolved]
  - Liver disorder [Recovered/Resolved]
  - Off label use [Recovered/Resolved]

NARRATIVE: CASE EVENT DATE: 20130101
